FAERS Safety Report 7926319-5 (Version None)
Quarter: 2011Q4

REPORT INFORMATION
  Report Type: 
  Country: None (occurrence: None)
  Receive Date: 20111118
  Receipt Date: 20111109
  Transmission Date: 20120403
  Serious: No
  Sender: FDA-Public Use
  Company Number: US-BIOGENIDEC-2011BI003652

PATIENT
  Sex: Male

DRUGS (1)
  1. TYSABRI [Suspect]
     Indication: MULTIPLE SCLEROSIS
     Route: 042
     Dates: start: 20101105, end: 20110318

REACTIONS (10)
  - DECREASED APPETITE [None]
  - WEIGHT DECREASED [None]
  - MEMORY IMPAIRMENT [None]
  - BALANCE DISORDER [None]
  - GAIT DISTURBANCE [None]
  - TREMOR [None]
  - DYSARTHRIA [None]
  - FALL [None]
  - MUSCLE SPASMS [None]
  - ALOPECIA [None]
